FAERS Safety Report 14353935 (Version 3)
Quarter: 2021Q4

REPORT INFORMATION
  Report Type: Spontaneous
  Country: US (occurrence: US)
  Receive Date: 20180105
  Receipt Date: 20211130
  Transmission Date: 20220304
  Serious: Yes (Disabling)
  Sender: FDA-Public Use
  Company Number: US-TEVA-2017-US-842139

PATIENT
  Age: 42 Year
  Sex: Female

DRUGS (18)
  1. DOCETAXEL [Suspect]
     Active Substance: DOCETAXEL
     Indication: Breast cancer stage IV
     Dosage: 126 MG, CYCLES-05, FREQUENCY - EVERY THREE WEEKS
     Route: 042
     Dates: start: 20140625, end: 20140625
  2. DOCETAXEL [Suspect]
     Active Substance: DOCETAXEL
     Dosage: 125 MG, CYCLES-05, FREQUENCY - EVERY THREE WEEKS
     Route: 042
     Dates: start: 20140716, end: 20140716
  3. DOCETAXEL [Suspect]
     Active Substance: DOCETAXEL
     Dosage: 125 MG, CYCLES-05, FREQUENCY - EVERY THREE WEEKS
     Route: 042
     Dates: start: 20140806, end: 20140806
  4. DOCETAXEL [Suspect]
     Active Substance: DOCETAXEL
     Dosage: 132 MG, CYCLES-05, FREQUENCY - EVERY THREE WEEKS
     Route: 042
     Dates: start: 20141126, end: 20141126
  5. DOCETAXEL [Suspect]
     Active Substance: DOCETAXEL
     Dosage: 131 MG, CYCLES-05, FREQUENCY - EVERY THREE WEEKS
     Route: 042
     Dates: start: 20141217, end: 20141217
  6. DOCETAXEL [Suspect]
     Active Substance: DOCETAXEL
     Indication: Breast cancer stage IV
     Dosage: 126 MG CYCLES-05, FREQUENCY - EVERY THREE WEEKS
     Route: 042
     Dates: start: 20140625, end: 20140625
  7. DOCETAXEL [Suspect]
     Active Substance: DOCETAXEL
     Dosage: 125 MG CYCLES-05, FREQUENCY - EVERY THREE WEEKS
     Route: 042
     Dates: start: 20140716, end: 20140716
  8. DOCETAXEL [Suspect]
     Active Substance: DOCETAXEL
     Dosage: 125 MG CYCLES-05, FREQUENCY - EVERY THREE WEEKS
     Route: 042
     Dates: start: 20140806, end: 20140806
  9. DOCETAXEL [Suspect]
     Active Substance: DOCETAXEL
     Dosage: 132 MG CYCLES-05, FREQUENCY - EVERY THREE WEEKS
     Route: 042
     Dates: start: 20141126, end: 20141126
  10. DOCETAXEL [Suspect]
     Active Substance: DOCETAXEL
     Dosage: 131 MG CYCLES-05, FREQUENCY - EVERY THREE WEEKS
     Route: 042
     Dates: start: 20141217, end: 20141217
  11. HERCEPTIN [Concomitant]
     Active Substance: TRASTUZUMAB
     Indication: Breast cancer stage IV
     Dosage: 415 MG, EVERY THREE WEEKS, CYCLES-05
     Route: 042
     Dates: start: 20140626, end: 20140626
  12. HERCEPTIN [Concomitant]
     Active Substance: TRASTUZUMAB
     Dosage: 405 MG, EVERY THREE WEEKS, CYCLES-05
     Route: 042
     Dates: start: 20140716, end: 20140716
  13. HERCEPTIN [Concomitant]
     Active Substance: TRASTUZUMAB
     Dosage: 400 MG, EVERY THREE WEEKS, CYCLES-05
     Route: 042
     Dates: start: 20140806, end: 20140806
  14. HERCEPTIN [Concomitant]
     Active Substance: TRASTUZUMAB
     Dosage: 415 MG, EVERY THREE WEEKS, CYCLES-05
     Route: 042
     Dates: start: 20141126, end: 20141126
  15. HERCEPTIN [Concomitant]
     Active Substance: TRASTUZUMAB
     Dosage: 455 MG, EVERY THREE WEEKS, CYCLES-05
     Route: 042
     Dates: start: 20141217, end: 20141217
  16. LUPRON [Concomitant]
     Active Substance: LEUPROLIDE ACETATE
     Dosage: 11.25 MG EVERY 3 MONTHS
     Route: 042
  17. ZOFRAN [Concomitant]
     Active Substance: ONDANSETRON HYDROCHLORIDE
     Dosage: 16 MG
     Route: 065
  18. XGEVA [Concomitant]
     Active Substance: DENOSUMAB
     Dosage: 120 MG Q 6 WEEKS
     Route: 058

REACTIONS (4)
  - Alopecia areata [Not Recovered/Not Resolved]
  - Madarosis [Not Recovered/Not Resolved]
  - Hair texture abnormal [Not Recovered/Not Resolved]
  - Hair colour changes [Not Recovered/Not Resolved]

NARRATIVE: CASE EVENT DATE: 20150101
